FAERS Safety Report 8342053-4 (Version None)
Quarter: 2012Q2

REPORT INFORMATION
  Report Type: 
  Country: None (occurrence: None)
  Receive Date: 20120507
  Receipt Date: 20120426
  Transmission Date: 20120825
  Serious: Yes (Life-Threatening, Hospitalization, Other)
  Sender: FDA-Public Use
  Company Number: PL-ROCHE-1065098

PATIENT
  Sex: Male
  Weight: 71.096 kg

DRUGS (6)
  1. RANIBIZUMAB [Suspect]
     Indication: DIABETIC RETINAL OEDEMA
     Route: 050
     Dates: start: 20110303, end: 20110303
  2. HYDROCHLOROTHIAZIDE [Concomitant]
     Dates: start: 20120205, end: 20120417
  3. FUROSEMIDE [Concomitant]
     Dates: start: 20120205, end: 20120417
  4. RANIBIZUMAB [Suspect]
     Route: 050
     Dates: start: 20120126, end: 20120126
  5. PLAVIX [Concomitant]
     Dates: start: 20101014, end: 20120417
  6. ASPIRIN [Concomitant]
     Dates: start: 20101014

REACTIONS (5)
  - BRADYCARDIA [None]
  - BASAL CELL CARCINOMA [None]
  - ACUTE RESPIRATORY FAILURE [None]
  - VENTRICULAR TACHYCARDIA [None]
  - RENAL FAILURE CHRONIC [None]
